FAERS Safety Report 5602792-2 (Version None)
Quarter: 2008Q1

REPORT INFORMATION
  Report Type: 
  Country: None (occurrence: None)
  Receive Date: 20080125
  Receipt Date: 20080118
  Transmission Date: 20080703
  Serious: Yes (Life-Threatening, Hospitalization, Disabling, Other)
  Sender: FDA-Public Use
  Company Number: US-PURDUE-USA_2008_0031172

PATIENT
  Age: 14 Year
  Sex: Female

DRUGS (4)
  1. MORPHINE SULFATE [Suspect]
     Indication: DRUG ABUSE
     Dates: start: 20070727
  2. OXYCONTIN [Suspect]
     Indication: DRUG ABUSE
     Dates: start: 20070727
  3. MARIJUANA [Suspect]
     Indication: DRUG ABUSE
     Route: 055
     Dates: start: 20070727
  4. FENTANYL [Suspect]
     Indication: DRUG ABUSE
     Route: 055
     Dates: start: 20070727

REACTIONS (5)
  - APHASIA [None]
  - COMA [None]
  - CYANOSIS CENTRAL [None]
  - MULTIPLE DRUG OVERDOSE [None]
  - SUBSTANCE ABUSE [None]
